FAERS Safety Report 8103241-5 (Version None)
Quarter: 2012Q1

REPORT INFORMATION
  Report Type: 
  Country: None (occurrence: None)
  Receive Date: 20120201
  Receipt Date: 20120121
  Transmission Date: 20120608
  Serious: Yes (Other)
  Sender: FDA-Public Use
  Company Number: US-SANOFI-AVENTIS-2011SA079918

PATIENT
  Age: 78 Year
  Sex: Female

DRUGS (19)
  1. FENTANYL CITRATE [Concomitant]
     Route: 062
  2. PEPCID [Concomitant]
  3. VALIUM [Concomitant]
  4. ASPIRIN [Concomitant]
  5. LIPITOR [Concomitant]
  6. LANOXIN [Concomitant]
  7. NORVASC [Concomitant]
  8. TRICOR [Concomitant]
  9. PLAVIX [Suspect]
  10. ESTRADIOL [Concomitant]
  11. TOPROL-XL [Concomitant]
  12. MORPHINE [Concomitant]
  13. COZAAR [Concomitant]
  14. NITROGLYCERIN COMP. [Concomitant]
  15. PHENERGAN [Concomitant]
  16. IMDUR [Concomitant]
  17. ALL OTHER THERAPEUTIC PRODUCTS [Concomitant]
  18. PREDNISONE TAB [Concomitant]
  19. OXYCODONE HCL [Concomitant]
     Indication: PAIN

REACTIONS (13)
  - CEREBROVASCULAR ACCIDENT [None]
  - TERMINAL STATE [None]
  - OESOPHAGEAL ULCER [None]
  - BACK PAIN [None]
  - CHEST PAIN [None]
  - ANEURYSM [None]
  - PAIN IN EXTREMITY [None]
  - BLOOD CHOLESTEROL DECREASED [None]
  - DRUG INEFFECTIVE [None]
  - MYOCARDIAL INFARCTION [None]
  - CONDITION AGGRAVATED [None]
  - WEIGHT DECREASED [None]
  - ARTERIAL OCCLUSIVE DISEASE [None]
